FAERS Safety Report 24610560 (Version 1)
Quarter: 2024Q4

REPORT INFORMATION
  Report Type: Spontaneous
  Country: US (occurrence: US)
  Receive Date: 20241112
  Receipt Date: 20241112
  Transmission Date: 20250115
  Serious: No
  Sender: FRESENIUS MEDICAL CARE
  Company Number: US-FMCRTG-FMC-2410-001356

PATIENT
  Sex: Female

DRUGS (1)
  1. DELFLEX [Suspect]
     Active Substance: CALCIUM CHLORIDE\DEXTROSE\MAGNESIUM CHLORIDE\SODIUM CHLORIDE\SODIUM LACTATE
     Indication: End stage renal disease
     Dosage: PAUSES = 0; PAUSE VOLUME = N/A; FILLS = 3; FIRST FILL VOLUME = 1500ML; TIDAL FILL VOLUME = 1300ML; T
     Route: 033

REACTIONS (1)
  - Hernia [Unknown]
